FAERS Safety Report 9140891 (Version 3)
Quarter: 2013Q2

REPORT INFORMATION
  Report Type: Report from Study
  Country: JP (occurrence: JP)
  Receive Date: 20130305
  Receipt Date: 20130405
  Transmission Date: 20140414
  Serious: Yes (Other)
  Sender: FDA-Public Use
  Company Number: JP-OTSUKA-JP-2013-10543

PATIENT
  Age: 49 Year
  Sex: Male

DRUGS (21)
  1. CORINAEL CR [Concomitant]
     Indication: PROPHYLAXIS
     Dosage: 40 MG MILLIGRAM(S), DAILY DOSE
     Route: 048
     Dates: start: 20130124
  2. SAMSCA [Suspect]
     Indication: FLUID RETENTION
     Dosage: 15 MG MILLIGRAM(S), QAM
     Route: 048
     Dates: start: 20130124, end: 20130127
  3. ATORVASTATIN [Concomitant]
     Dosage: 10 MG MILLIGRAM(S), DAILY DOSE
     Route: 048
     Dates: end: 20130122
  4. AMLODIPINE [Concomitant]
     Dosage: 5 MG MILLIGRAM(S), DAILY DOSE
     Route: 048
     Dates: end: 20130122
  5. BEZATATE [Concomitant]
     Dosage: 2 DF DOSAGE FORM, DAILY DOSE
     Route: 048
     Dates: end: 20130122
  6. TEMOCAPRIL HYDROCHLORIDE [Concomitant]
     Dosage: 4 MG MILLIGRAM(S), DAILY DOSE
     Route: 048
     Dates: end: 20130122
  7. CINCELAKIN [Concomitant]
     Dosage: 45 MG MILLIGRAM(S), DAILY DOSE
     Route: 048
     Dates: end: 20130122
  8. SOLACET D [Concomitant]
     Indication: FLUID REPLACEMENT
     Dosage: 1000 ML MILLILITRE(S), DAILY DOSE
     Route: 041
     Dates: end: 20130123
  9. HELVOTTZ [Concomitant]
     Dosage: 20 MG MILLIGRAM(S), DAILY DOSE
     Route: 048
     Dates: end: 20130123
  10. OMEPRAZOLE [Concomitant]
     Indication: PROPHYLAXIS
     Dosage: 40 MG MILLIGRAM(S), DAILY DOSE
     Route: 042
     Dates: end: 20130126
  11. BFLUID [Concomitant]
     Indication: FLUID REPLACEMENT
     Dosage: 1000 ML MILLILITRE(S), DAILY DOSE
     Route: 041
     Dates: end: 20130127
  12. TANDETRON [Concomitant]
     Dosage: 1500 MCG, DAILY DOSE
     Route: 041
  13. ELASPOL [Concomitant]
     Indication: PROPHYLAXIS
     Dosage: 300 MG MILLIGRAM(S), DAILY DOSE
     Route: 042
  14. DEPAKENE-R [Concomitant]
     Dosage: 800 MG MILLIGRAM(S), DAILY DOSE
     Route: 048
  15. GLUCOSE [Concomitant]
     Indication: MEDICATION DILUTION
     Dosage: 250 ML MILLILITRE(S), DAILY DOSE
     Route: 042
  16. SEISHOKU [Concomitant]
     Indication: MEDICATION DILUTION
     Dosage: 170 ML MILLILITRE(S), DAILY DOSE
     Route: 041
  17. SOLU MEDROL [Concomitant]
     Indication: PROPHYLAXIS
     Dosage: 1000 MG MILLIGRAM(S), DAILY DOSE
     Route: 042
     Dates: start: 20130124, end: 20130124
  18. NICARDIPINE HYDROCHLORIDE [Concomitant]
     Indication: PROPHYLAXIS
     Dosage: 240 ML MILLILITRE(S), DAILY DOSE
     Route: 041
     Dates: start: 20130124, end: 20130124
  19. NICARDIPINE HYDROCHLORIDE [Concomitant]
     Dosage: 96 ML MILLILITRE(S), DAILY DOSE
     Route: 041
     Dates: start: 20130127, end: 20130128
  20. CARDENALIN [Concomitant]
     Dosage: 8 MG MILLIGRAM(S), DAILY DOSE
     Route: 048
     Dates: start: 20130124
  21. KERLONG [Concomitant]
     Dosage: 10 MG MILLIGRAM(S), DAILY DOSE
     Route: 048
     Dates: start: 20130124

REACTIONS (3)
  - Thirst [Recovered/Resolved]
  - Blood sodium increased [Recovered/Resolved]
  - Blood urea increased [Unknown]
